FAERS Safety Report 14611126 (Version 2)
Quarter: 2018Q1

REPORT INFORMATION
  Report Type: Spontaneous
  Country: CH (occurrence: CH)
  Receive Date: 20180308
  Receipt Date: 20180314
  Transmission Date: 20180509
  Serious: Yes (Other)
  Sender: FDA-Public Use
  Company Number: CH-009507513-1803CHE001317

PATIENT
  Age: 65 Year
  Sex: Female

DRUGS (1)
  1. ATOZET [Suspect]
     Active Substance: ATORVASTATIN CALCIUM\EZETIMIBE
     Dosage: 10/80 MG
     Route: 048

REACTIONS (1)
  - Hypertensive crisis [Unknown]
